FAERS Safety Report 22840396 (Version 9)
Quarter: 2025Q1

REPORT INFORMATION
  Report Type: Spontaneous
  Country: CA (occurrence: CA)
  Receive Date: 20230819
  Receipt Date: 20250102
  Transmission Date: 20250408
  Serious: Yes (Other)
  Sender: SANDOZ
  Company Number: CA-002147023-PHHY2017CA137140

PATIENT
  Age: 55 Year
  Sex: Female

DRUGS (28)
  1. ADALIMUMAB [Suspect]
     Active Substance: ADALIMUMAB
     Indication: Product used for unknown indication
     Route: 058
  2. CELEBREX [Suspect]
     Active Substance: CELECOXIB
     Indication: Product used for unknown indication
     Route: 065
  3. COSENTYX [Suspect]
     Active Substance: SECUKINUMAB
     Dosage: 150 MG, QMO
     Route: 058
     Dates: start: 20230907
  4. COSENTYX [Suspect]
     Active Substance: SECUKINUMAB
     Dosage: 300 MG, QMO
     Route: 058
     Dates: start: 20170619
  5. COSENTYX [Suspect]
     Active Substance: SECUKINUMAB
     Dosage: 300 MG, QMO
     Route: 058
     Dates: start: 20170822
  6. COSENTYX [Suspect]
     Active Substance: SECUKINUMAB
     Dosage: 300 MG, QMO
     Route: 058
     Dates: start: 20170919
  7. COSENTYX [Suspect]
     Active Substance: SECUKINUMAB
     Dosage: 300 MG, QMO
     Route: 058
     Dates: start: 20230907
  8. COSENTYX [Suspect]
     Active Substance: SECUKINUMAB
     Dosage: 300 MG, QMO
     Route: 058
     Dates: start: 201808
  9. COSENTYX [Suspect]
     Active Substance: SECUKINUMAB
     Dosage: 300 MG, QMO
     Route: 058
     Dates: end: 202411
  10. COSENTYX [Suspect]
     Active Substance: SECUKINUMAB
     Indication: Psoriatic arthropathy
     Dosage: 300 MG, QW
     Route: 058
     Dates: start: 20170522, end: 20170612
  11. COSENTYX [Suspect]
     Active Substance: SECUKINUMAB
     Route: 058
     Dates: start: 201705, end: 201808
  12. HYDROXYCHLOROQUINE [Suspect]
     Active Substance: HYDROXYCHLOROQUINE
     Indication: Product used for unknown indication
     Route: 065
  13. INFLIXIMAB [Suspect]
     Active Substance: INFLIXIMAB
     Indication: Product used for unknown indication
     Route: 065
  14. METHOTREXATE [Suspect]
     Active Substance: METHOTREXATE
     Indication: Product used for unknown indication
     Route: 065
  15. SULFASALAZINE [Suspect]
     Active Substance: SULFASALAZINE
     Indication: Product used for unknown indication
     Route: 065
  16. CANNABIS SATIVA FLOWERING TOP [Concomitant]
     Active Substance: CANNABIS SATIVA FLOWERING TOP
     Indication: Product used for unknown indication
     Route: 065
  17. CORTISONE [Concomitant]
     Active Substance: CORTISONE
     Indication: Product used for unknown indication
     Route: 065
  18. DESOXIMETASONE [Concomitant]
     Active Substance: DESOXIMETASONE
     Indication: Product used for unknown indication
     Route: 065
  19. HUMIRA [Concomitant]
     Active Substance: ADALIMUMAB
     Indication: Product used for unknown indication
     Route: 065
  20. CANNABIS SATIVA SUBSP. INDICA TOP [Concomitant]
     Active Substance: CANNABIS SATIVA SUBSP. INDICA TOP
     Indication: Product used for unknown indication
     Route: 065
  21. MELOXICAM [Concomitant]
     Active Substance: MELOXICAM
     Indication: Product used for unknown indication
     Route: 065
  22. MELOXICAM [Concomitant]
     Active Substance: MELOXICAM
     Indication: Product used for unknown indication
     Route: 065
  23. NAPROXEN [Concomitant]
     Active Substance: NAPROXEN
     Indication: Product used for unknown indication
     Route: 065
  24. PLAQUENIL [Concomitant]
     Active Substance: HYDROXYCHLOROQUINE SULFATE
     Indication: Product used for unknown indication
     Route: 065
  25. PREDNISONE [Concomitant]
     Active Substance: PREDNISONE
     Indication: Product used for unknown indication
     Route: 065
  26. REMICADE [Concomitant]
     Active Substance: INFLIXIMAB
     Indication: Product used for unknown indication
     Route: 065
  27. TRAMADOL [Concomitant]
     Active Substance: TRAMADOL
     Indication: Product used for unknown indication
     Route: 065
  28. TRAZODONE [Concomitant]
     Active Substance: TRAZODONE HYDROCHLORIDE
     Indication: Product used for unknown indication
     Route: 065

REACTIONS (13)
  - Psoriatic arthropathy [Not Recovered/Not Resolved]
  - Illness [Not Recovered/Not Resolved]
  - Decreased activity [Unknown]
  - Dysstasia [Unknown]
  - Grip strength decreased [Unknown]
  - Gait disturbance [Unknown]
  - Pain [Unknown]
  - General physical health deterioration [Unknown]
  - Condition aggravated [Not Recovered/Not Resolved]
  - Influenza [Unknown]
  - Rash [Unknown]
  - Treatment failure [Unknown]
  - Inappropriate schedule of product administration [Unknown]

NARRATIVE: CASE EVENT DATE: 20170801
